FAERS Safety Report 7861494-2 (Version None)
Quarter: 2011Q4

REPORT INFORMATION
  Report Type: 
  Country: None (occurrence: None)
  Receive Date: 20111027
  Receipt Date: 20111024
  Transmission Date: 20120403
  Serious: Yes (Life-Threatening)
  Sender: FDA-Public Use
  Company Number: NO-PFIZER INC-2011258491

PATIENT
  Age: 77 Year
  Sex: Female

DRUGS (4)
  1. MIDAZOLAM HCL [Concomitant]
     Indication: ANAESTHESIA PROCEDURE
     Route: 051
     Dates: start: 20111010
  2. MARCAINE [Concomitant]
     Indication: ANAESTHESIA PROCEDURE
     Route: 024
     Dates: start: 20111010, end: 20111010
  3. CLINDAMYCIN HCL [Suspect]
     Indication: ANTIBIOTIC PROPHYLAXIS
     Dosage: 600MG/DAY
     Route: 042
     Dates: start: 20111010, end: 20111010
  4. FENTANYL-100 [Concomitant]
     Indication: ANAESTHESIA PROCEDURE
     Dosage: 50 MIKROGRAM: REFRACT DOSES
     Route: 051
     Dates: start: 20111010

REACTIONS (3)
  - CARDIAC ARREST [None]
  - ANAPHYLACTIC SHOCK [None]
  - URTICARIA [None]
